FAERS Safety Report 9637597 (Version 2)
Quarter: 2013Q4

REPORT INFORMATION
  Report Type: Spontaneous
  Country: US (occurrence: None)
  Receive Date: 20131018
  Receipt Date: 20131112
  Transmission Date: 20140711
  Serious: Yes (Other)
  Sender: FDA-Public Use
  Company Number: 1946253

PATIENT
  Age: 66 Year
  Sex: Female
  Weight: 81.8 kg

DRUGS (2)
  1. PACLITAXEL [Suspect]
     Indication: PRODUCT USED FOR UNKNOWN INDICATION
     Route: 041
     Dates: start: 20131002, end: 20131002
  2. (CARBOPLATIN) [Concomitant]

REACTIONS (3)
  - Flushing [None]
  - Throat tightness [None]
  - Blood pressure increased [None]
